FAERS Safety Report 8084331-2 (Version None)
Quarter: 2012Q1

REPORT INFORMATION
  Report Type: 
  Country: None (occurrence: None)
  Receive Date: 20120128
  Receipt Date: 20110128
  Transmission Date: 20120608
  Serious: No
  Sender: FDA-Public Use
  Company Number: US-ABBOTT-11P-163-0701562-00

PATIENT
  Age: 65 Year
  Sex: Female

DRUGS (11)
  1. ACTONEL [Concomitant]
     Indication: OSTEOPOROSIS
     Route: 048
  2. TOPICAL [Concomitant]
     Indication: ROSACEA
  3. XANAX [Concomitant]
     Indication: PRODUCT USED FOR UNKNOWN INDICATION
  4. HUMIRA [Suspect]
     Indication: JUVENILE ARTHRITIS
  5. CYMBALTA [Concomitant]
     Indication: DEPRESSION
  6. OTC VITAMINS [Concomitant]
     Indication: PRODUCT USED FOR UNKNOWN INDICATION
  7. NEXIUM [Concomitant]
     Indication: GASTROOESOPHAGEAL REFLUX DISEASE
  8. PREDNISONE TAB [Concomitant]
     Indication: PAIN
  9. EYE DROPS [Concomitant]
     Indication: DRY EYE
  10. TOPICAL [Concomitant]
     Indication: BLEPHARITIS
  11. ALLEERGY MEDICATION [Concomitant]
     Indication: PRODUCT USED FOR UNKNOWN INDICATION

REACTIONS (1)
  - INJECTION SITE PAIN [None]
